FAERS Safety Report 4276750-7 (Version None)
Quarter: 2004Q1

REPORT INFORMATION
  Report Type: 
  Country: None (occurrence: None)
  Receive Date: 20040120
  Receipt Date: 20040105
  Transmission Date: 20041129
  Serious: Yes (Hospitalization)
  Sender: FDA-Public Use
  Company Number: 2004AP00060

PATIENT
  Age: 23 Year
  Sex: Male

DRUGS (3)
  1. ATENOLOL [Suspect]
     Indication: OVERDOSE
     Dosage: 1400 MG DAILY PO
     Route: 048
  2. OXCARBAZEPINE [Suspect]
     Indication: OVERDOSE
     Dosage: 8700 MG DAILY PO
     Route: 048
  3. RISPERIDONE [Suspect]
     Indication: OVERDOSE
     Dosage: 60 MG DAILY PO
     Route: 048

REACTIONS (6)
  - AGITATION [None]
  - COMA [None]
  - INTENTIONAL OVERDOSE [None]
  - MULTIPLE DRUG OVERDOSE [None]
  - OCULOGYRATION [None]
  - SUICIDE ATTEMPT [None]
